FAERS Safety Report 5765578-4 (Version None)
Quarter: 2008Q3

REPORT INFORMATION
  Report Type: 
  Country: None (occurrence: None)
  Receive Date: 20080611
  Receipt Date: 20080602
  Transmission Date: 20090109
  Serious: Yes (Death)
  Sender: FDA-Public Use
  Company Number: CA-ABBOTT-08P-028-0456021-00

PATIENT
  Age: 47 Year
  Sex: Female

DRUGS (7)
  1. HYDROMORPHONE HCL [Suspect]
     Indication: DRUG USE FOR UNKNOWN INDICATION
     Route: 065
  2. IBUPROFEN TABLETS [Suspect]
     Indication: DRUG USE FOR UNKNOWN INDICATION
     Route: 048
  3. AMITRIPTYLINE HCL [Suspect]
     Indication: DRUG USE FOR UNKNOWN INDICATION
     Route: 048
  4. NORTRIPTYLINE HCL [Suspect]
     Indication: DRUG USE FOR UNKNOWN INDICATION
     Route: 048
  5. QUETIAPINE FUMARATE [Suspect]
     Indication: DRUG USE FOR UNKNOWN INDICATION
     Route: 048
  6. METOCLOPRAMIDE [Suspect]
     Indication: DRUG USE FOR UNKNOWN INDICATION
     Route: 048
  7. BROMAZEPAM [Suspect]
     Indication: DRUG USE FOR UNKNOWN INDICATION
     Route: 048

REACTIONS (2)
  - DRUG TOXICITY [None]
  - SUBSTANCE ABUSE [None]
